FAERS Safety Report 24707591 (Version 2)
Quarter: 2025Q1

REPORT INFORMATION
  Report Type: Spontaneous
  Country: FR (occurrence: FR)
  Receive Date: 20241206
  Receipt Date: 20250102
  Transmission Date: 20250408
  Serious: Yes (Other)
  Sender: MERCK
  Company Number: None

PATIENT
  Age: 2 Year
  Sex: Male
  Weight: 14.6 kg

DRUGS (17)
  1. TEMOZOLOMIDE [Suspect]
     Active Substance: TEMOZOLOMIDE
     Indication: Neuroblastoma
     Dosage: CYCLE 1
     Route: 048
     Dates: start: 20241001, end: 20241005
  2. TEMOZOLOMIDE [Suspect]
     Active Substance: TEMOZOLOMIDE
     Dosage: CYCLE 2
     Route: 048
     Dates: start: 20241022, end: 20241026
  3. TEMOZOLOMIDE [Suspect]
     Active Substance: TEMOZOLOMIDE
     Dosage: CYCLE 3
     Route: 048
     Dates: start: 20241112, end: 20241116
  4. TEMOZOLOMIDE [Suspect]
     Active Substance: TEMOZOLOMIDE
     Dosage: CYCLE 4
     Route: 048
     Dates: start: 20241206
  5. IRINOTECAN [Suspect]
     Active Substance: IRINOTECAN
     Indication: Neuroblastoma
     Dosage: CYCLE 1
     Route: 042
     Dates: start: 20241001, end: 20241005
  6. IRINOTECAN [Suspect]
     Active Substance: IRINOTECAN
     Dosage: CYCLE 2
     Route: 042
     Dates: start: 20241022, end: 20241026
  7. IRINOTECAN [Suspect]
     Active Substance: IRINOTECAN
     Dosage: CYCLE 3
     Route: 042
     Dates: start: 20241112, end: 20241116
  8. IRINOTECAN [Suspect]
     Active Substance: IRINOTECAN
     Dosage: 50 MILLIGRAM/SQ. METER, QD
     Route: 042
     Dates: start: 20241206
  9. DINUTUXIMAB BETA [Concomitant]
     Active Substance: DINUTUXIMAB BETA
     Indication: Neuroblastoma
     Dosage: ACCORDING TO THE PROTOCOL
     Route: 042
     Dates: start: 20241001
  10. GABAPENTIN [Concomitant]
     Active Substance: GABAPENTIN
     Indication: Pain
     Dosage: 30 MILLIGRAM/SQ. METER, QD
     Dates: start: 20241001
  11. MORPHINE [Concomitant]
     Active Substance: MORPHINE
     Indication: Pain
     Dosage: 1 MILLIGRAM/KILOGRAM, QD
     Dates: start: 20241001
  12. SULFAMETHOXAZOLE [Concomitant]
     Active Substance: SULFAMETHOXAZOLE
     Indication: Prophylaxis
     Dosage: 20 MILLIGRAM/KILOGRAM, QD
     Dates: start: 20241001
  13. CETIRIZINE [Concomitant]
     Active Substance: CETIRIZINE HYDROCHLORIDE
     Indication: Prophylaxis
     Dosage: 5 MILLIGRAM/SQ. METER, QD
     Dates: start: 20241001
  14. ONDANSETRON [Concomitant]
     Active Substance: ONDANSETRON
     Indication: Antiemetic supportive care
     Dosage: 5 MILLIGRAM/SQ. METER, QD
     Dates: start: 20241001
  15. PIPERACILLIN SODIUM\TAZOBACTAM SODIUM [Concomitant]
     Active Substance: PIPERACILLIN SODIUM\TAZOBACTAM SODIUM
     Indication: Clostridium difficile infection
     Dosage: 10 MILLIGRAM/KILOGRAM, QD
     Dates: start: 20241130
  16. AMIKACIN [Concomitant]
     Active Substance: AMIKACIN
     Indication: Clostridium difficile infection
     Dosage: 15 MILLIGRAM/KILOGRAM, QD
     Dates: start: 20241130
  17. VANCOMYCIN [Concomitant]
     Active Substance: VANCOMYCIN
     Indication: Clostridium difficile infection
     Dosage: 125 MG 4 TIMES DAILY
     Dates: start: 20241202

REACTIONS (3)
  - Diarrhoea [Recovered/Resolved]
  - Anal inflammation [Recovered/Resolved]
  - Clostridium difficile infection [Unknown]

NARRATIVE: CASE EVENT DATE: 20240101
